FAERS Safety Report 24753505 (Version 1)
Quarter: 2024Q4

REPORT INFORMATION
  Report Type: Spontaneous
  Country: CN (occurrence: CN)
  Receive Date: 20241219
  Receipt Date: 20241219
  Transmission Date: 20250114
  Serious: Yes (Hospitalization)
  Sender: ELI LILLY AND COMPANY
  Company Number: CN-ELI_LILLY_AND_COMPANY-CN202412010497

PATIENT
  Age: 70 Year
  Sex: Male

DRUGS (1)
  1. CYRAMZA [Suspect]
     Active Substance: RAMUCIRUMAB
     Indication: Gastric cancer
     Dosage: 440 MG, OTHER (EVERY 28 DAYS)
     Route: 041
     Dates: start: 20240923, end: 20241107

REACTIONS (6)
  - Haematuria [Recovering/Resolving]
  - Cystitis glandularis [Unknown]
  - Urinary tract infection [Unknown]
  - Benign prostatic hyperplasia [Unknown]
  - Malignant neoplasm progression [Unknown]
  - Hypertension [Unknown]

NARRATIVE: CASE EVENT DATE: 20241116
